FAERS Safety Report 4920120-2 (Version None)
Quarter: 2006Q1

REPORT INFORMATION
  Report Type: 
  Country: None (occurrence: None)
  Receive Date: 20060217
  Receipt Date: 20060208
  Transmission Date: 20060701
  Serious: Yes (Disabling)
  Sender: FDA-Public Use
  Company Number: 2005137308

PATIENT
  Age: 73 Year
  Sex: Male
  Weight: 62 kg

DRUGS (1)
  1. SUTENT [Suspect]
     Indication: RENAL CELL CARCINOMA STAGE UNSPECIFIED
     Dosage: 37.5 MG, 1 IN 1 D, ORAL
     Route: 048
     Dates: start: 20050831, end: 20050927

REACTIONS (3)
  - DEAFNESS [None]
  - GENERAL PHYSICAL HEALTH DETERIORATION [None]
  - TYMPANIC MEMBRANE PERFORATION [None]
